FAERS Safety Report 11448435 (Version 3)
Quarter: 2015Q4

REPORT INFORMATION
  Report Type: Spontaneous
  Country: US (occurrence: US)
  Receive Date: 20150902
  Receipt Date: 20151225
  Transmission Date: 20160304
  Serious: Yes (Hospitalization, Other)
  Sender: FDA-Public Use
  Company Number: US-UCBSA-2015025988

PATIENT
  Age: 75 Year
  Sex: Female
  Weight: 72.56 kg

DRUGS (37)
  1. CIMZIA [Suspect]
     Active Substance: CERTOLIZUMAB PEGOL
     Dosage: 200 MG, EV 2 WEEKS(QOW)
     Dates: start: 20150810
  2. PREDNISONE. [Concomitant]
     Active Substance: PREDNISONE
     Indication: RHEUMATOID ARTHRITIS
     Dosage: UNK, 2 TABLETS EVERY MORNING (5 MG)
     Route: 048
     Dates: start: 20140911
  3. DOCUSATE SODIUM. [Concomitant]
     Active Substance: DOCUSATE SODIUM
     Indication: PRODUCT USED FOR UNKNOWN INDICATION
     Dosage: 1 DF, ONCE DAILY (QD) ) (250 MG)
     Dates: start: 20140807
  4. PAROXETINE HCL [Concomitant]
     Active Substance: PAROXETINE HYDROCHLORIDE
     Indication: PRODUCT USED FOR UNKNOWN INDICATION
     Dosage: 1 DF, ONCE DAILY (QD) (20 MG)
     Dates: start: 20150519
  5. VITAMIN D [Concomitant]
     Active Substance: CHOLECALCIFEROL
     Indication: PRODUCT USED FOR UNKNOWN INDICATION
     Dosage: (50000 UNIT) 1 CAPSULE EVERY MONDAY
     Route: 048
     Dates: start: 20140807
  6. FLUTICASONE PROPIONATE W/SALMETEROL [Concomitant]
     Active Substance: FLUTICASONE PROPIONATE\SALMETEROL XINAFOATE
     Indication: PRODUCT USED FOR UNKNOWN INDICATION
     Dosage: UNK,  9250-50 MCG/DOSE) (INHALE 1 DOSE BY MOUTH TWICE DAILY)
     Dates: start: 20140807
  7. LASIX [Concomitant]
     Active Substance: FUROSEMIDE
     Dosage: UNK, ONCE DAILY (QD)
     Route: 048
  8. ARMOUR THYROID [Concomitant]
     Active Substance: THYROID, PORCINE\THYROID, UNSPECIFIED
     Indication: PRODUCT USED FOR UNKNOWN INDICATION
     Dosage: UNK,  (STRENGTH 6O MG) (1 TABLET EVERY MORNING)
     Dates: start: 20140807
  9. POTASSIUM CHLORIDE. [Concomitant]
     Active Substance: POTASSIUM CHLORIDE
     Dosage: 1 DF, ONCE DAILY (QD)
     Dates: start: 20150318
  10. MULTIPLE VITAMINS [Concomitant]
     Active Substance: VITAMINS
     Indication: PRODUCT USED FOR UNKNOWN INDICATION
     Dosage: 1 DF, ONCE DAILY (QD)
     Dates: start: 20140807
  11. PREDNISONE. [Concomitant]
     Active Substance: PREDNISONE
     Dosage: 5 MG, ONCE DAILY (QD)
     Route: 048
  12. PROAIR HFA [Concomitant]
     Active Substance: ALBUTEROL SULFATE
     Indication: PRODUCT USED FOR UNKNOWN INDICATION
     Dosage: UNK, 1 -2 PUFFS EVERY 4 TO 6 HOURS AS NEEDED
     Dates: start: 20141114
  13. PROMETHAZINE W/CODEINE [Concomitant]
     Indication: PRODUCT USED FOR UNKNOWN INDICATION
     Dosage: UNK, 1 TEA SPOONFUL EVERY 4 HOURS AS NEEDED
     Dates: start: 20150109
  14. PIZOTIFEN [Concomitant]
     Active Substance: PIZOTYLINE
     Indication: DEPRESSION
     Dosage: UNK, ONCE DAILY (QD)
     Route: 048
  15. IPRATROPIUM/ALBUTEROL [Concomitant]
     Active Substance: ALBUTEROL\IPRATROPIUM
     Dosage: UNK, 1 UNIT DOSE VIA HAND HELD NEBULIZER EVERY 6 HOURS AND EVERY 2 HOURS AS NEEDED
     Dates: start: 20140918
  16. HYDROCODONE/APAP [Concomitant]
     Active Substance: ACETAMINOPHEN\HYDROCODONE BITARTRATE
     Indication: PRODUCT USED FOR UNKNOWN INDICATION
     Dosage: 1 DF, 3X/DAY (TID) (5-325 MG) (AS NEEDED)
     Dates: start: 20140807
  17. SINGULAIR [Concomitant]
     Active Substance: MONTELUKAST SODIUM
     Indication: PRODUCT USED FOR UNKNOWN INDICATION
     Dosage: (10 MG), (1 TABLET AT BED TIME)
     Dates: start: 20140807
  18. POTASSIUM CHLORIDE. [Concomitant]
     Active Substance: POTASSIUM CHLORIDE
     Indication: PRODUCT USED FOR UNKNOWN INDICATION
     Dosage: 1 DF, ONCE DAILY (QD)
     Dates: start: 20140807
  19. CIMZIA [Suspect]
     Active Substance: CERTOLIZUMAB PEGOL
     Indication: RHEUMATOID ARTHRITIS
     Dosage: 200 MG, EV 2 WEEKS(QOW)
     Route: 058
     Dates: start: 20140916, end: 20150715
  20. OMEPRAZOLE. [Concomitant]
     Active Substance: OMEPRAZOLE
     Indication: PRODUCT USED FOR UNKNOWN INDICATION
     Dosage: 1 DF, ONCE DAILY (QD) (20 MG)
     Dates: start: 20150326
  21. TYLENOL [Concomitant]
     Active Substance: ACETAMINOPHEN
     Indication: PRODUCT USED FOR UNKNOWN INDICATION
     Dosage: UNK, (325 MG), 2 TABLETS EVERY 4 HOURS)
     Dates: start: 20140807
  22. ZOFRAN [Concomitant]
     Active Substance: ONDANSETRON HYDROCHLORIDE
     Indication: PRODUCT USED FOR UNKNOWN INDICATION
     Dosage: UNK, (4 MG) (1 TABLET EVERY 8 HOURS PRN)
     Dates: start: 20140807
  23. ADVAIR HFA [Concomitant]
     Active Substance: FLUTICASONE PROPIONATE\SALMETEROL XINAFOATE
     Indication: UNEVALUABLE EVENT
     Dosage: UNK, ONCE DAILY (QD)
     Route: 048
  24. ACIDOPHILUS/PECTIN [Concomitant]
     Indication: PRODUCT USED FOR UNKNOWN INDICATION
     Dosage: 1 DF, 2X/DAY (BID) (1 CAPSULE TWICE DAILY)
     Dates: start: 20140807
  25. MILK OF MAGNESIA [Concomitant]
     Active Substance: MAGNESIUM HYDROXIDE
     Indication: CONSTIPATION
     Dosage: UNK, 30 ML PO PRN (AS NEEDED)
     Dates: start: 20140807
  26. TRAMADOL. [Concomitant]
     Active Substance: TRAMADOL
     Indication: ARTHRALGIA
     Dosage: 1 DF, 3X/DAY (TID), (50 MG)
     Dates: start: 20140912
  27. TRAMADOL. [Concomitant]
     Active Substance: TRAMADOL
     Dosage: UNK, AS NEEDED (PRN)
     Route: 048
  28. GENTAMICIN SULFATE OPHTHALMIC [Concomitant]
     Indication: PRODUCT USED FOR UNKNOWN INDICATION
     Dosage: UNK, SMALL AMOUNT OF OINTMENT 2 TO 3 TIMES DAILY TO AFFECTED EYES
     Dates: start: 20150120
  29. IPRATROPIUM/ALBUTEROL [Concomitant]
     Active Substance: ALBUTEROL\IPRATROPIUM
     Indication: DYSPNOEA
     Dosage: UNK, 1 UNIT INHALE ORALLY EVERY 2 HOURS AS NEEDED (PRN)
     Dates: start: 20140807
  30. XARELTO [Concomitant]
     Active Substance: RIVAROXABAN
     Indication: PRODUCT USED FOR UNKNOWN INDICATION
     Dosage: 1 DF, ONCE DAILY (QD) (20 MG)
     Dates: start: 20140807
  31. ACETYLSALICYLIC ACID W/CAFFEINE/PARACETAMOL [Concomitant]
     Active Substance: ACETAMINOPHEN\ASPIRIN\CAFFEINE\CODEINE PHOSPHATE
     Indication: PRODUCT USED FOR UNKNOWN INDICATION
     Dosage: UNK, 2 TABLET TWICE DAILY PRN (AS NEEDED)
     Dates: start: 20140807
  32. VOLTAREN [Concomitant]
     Active Substance: DICLOFENAC SODIUM
     Indication: PRODUCT USED FOR UNKNOWN INDICATION
     Dosage: UNK, 2 GM TO UPPER EXTREMITIES 4 TIMES A DAY
     Dates: start: 20141202
  33. LASIX [Concomitant]
     Active Substance: FUROSEMIDE
     Indication: UNEVALUABLE EVENT
     Dosage: 1 DF, 2X/DAY (BID) (20 MG)
     Dates: start: 20140807
  34. BUTALBITAL, ACETAMINOPHEN, AND CAFFEINE [Concomitant]
     Active Substance: ACETAMINOPHEN\BUTALBITAL\CAFFEINE
     Indication: HEADACHE
     Dosage: 1 DF, 3X/DAY (TID), (50-325-40 MG) AS NEEDED
     Route: 048
     Dates: start: 20150331
  35. LEFLUNOMIDE. [Concomitant]
     Active Substance: LEFLUNOMIDE
     Indication: PRODUCT USED FOR UNKNOWN INDICATION
     Dosage: 1 DF, ONCE DAILY (QD) (10 MG)
     Dates: start: 20150326
  36. SYNTHROID [Concomitant]
     Active Substance: LEVOTHYROXINE SODIUM
     Indication: PRODUCT USED FOR UNKNOWN INDICATION
     Dosage: 1 DF, ONCE DAILY (QD) (100 MCG)
     Dates: start: 20140902
  37. MELATONIN [Concomitant]
     Active Substance: MELATONIN
     Indication: PRODUCT USED FOR UNKNOWN INDICATION
     Dosage: (3 MG) (1 TABLET BED TIME)
     Dates: start: 20140807

REACTIONS (5)
  - Sepsis [Recovered/Resolved]
  - Urinary tract infection [Unknown]
  - Blood iron decreased [Recovered/Resolved]
  - Lower limb fracture [Recovered/Resolved]
  - Musculoskeletal stiffness [Not Recovered/Not Resolved]

NARRATIVE: CASE EVENT DATE: 201507
